FAERS Safety Report 14573809 (Version 1)
Quarter: 2018Q1

REPORT INFORMATION
  Report Type: Spontaneous
  Country: US (occurrence: US)
  Receive Date: 20180226
  Receipt Date: 20180226
  Transmission Date: 20180509
  Serious: Yes (Hospitalization, Other)
  Sender: FDA-Public Use
  Company Number: US-PFIZER INC-2018078042

PATIENT
  Age: 66 Year
  Sex: Male
  Weight: 93.9 kg

DRUGS (13)
  1. PLAVIX [Concomitant]
     Active Substance: CLOPIDOGREL BISULFATE
     Dosage: UNK
  2. MEROPENEM. [Suspect]
     Active Substance: MEROPENEM
     Indication: PNEUMONIA ASPIRATION
     Dosage: 1 G, 3X/DAY (Q8H)
     Route: 042
  3. LOTRIMIN [Concomitant]
     Active Substance: CLOTRIMAZOLE
     Dosage: UNK (APPLIED TO AFFECTED AREAS)
  4. PREDNISONE. [Concomitant]
     Active Substance: PREDNISONE
     Dosage: 40 MG, DAILY( TAPER AS DIRECTED)
     Route: 048
  5. TAGRISSO [Suspect]
     Active Substance: OSIMERTINIB
     Indication: LUNG NEOPLASM MALIGNANT
     Dosage: 80 MG, DAILY
     Route: 065
  6. CIPRO [Concomitant]
     Active Substance: CIPROFLOXACIN HYDROCHLORIDE
     Dosage: UNK
  7. LANSOPRAZOLE. [Concomitant]
     Active Substance: LANSOPRAZOLE
     Dosage: UNK
     Route: 048
  8. PAREGORIC [Concomitant]
     Active Substance: MORPHINE
     Dosage: UNK, AS NEEDED (4 TIMES DAILY AS NEEDED)
     Route: 048
  9. FLOMAX [Concomitant]
     Active Substance: TAMSULOSIN HYDROCHLORIDE
     Dosage: UNK
  10. PRAVASTATIN. [Concomitant]
     Active Substance: PRAVASTATIN
     Dosage: UNK
     Route: 048
  11. ARFORMOTEROL [Concomitant]
     Active Substance: ARFORMOTEROL
     Dosage: UNK
     Route: 055
  12. COREG [Concomitant]
     Active Substance: CARVEDILOL
     Dosage: UNK
  13. VITAMIN D3 [Concomitant]
     Active Substance: CHOLECALCIFEROL
     Dosage: UNK
     Route: 048

REACTIONS (18)
  - Cough [Unknown]
  - Productive cough [Unknown]
  - Chronic respiratory failure [Unknown]
  - Ischaemic stroke [Unknown]
  - Hypothyroidism [Unknown]
  - Stridor [Unknown]
  - Drug ineffective [Recovering/Resolving]
  - Carotid artery stenosis [Unknown]
  - Pneumonia aspiration [Unknown]
  - Coronary artery disease [Unknown]
  - Pulmonary mass [Unknown]
  - Diarrhoea [Unknown]
  - Malnutrition [Unknown]
  - Hypertension [Unknown]
  - Dyspnoea [Unknown]
  - Oxygen saturation decreased [Unknown]
  - Pyrexia [Unknown]
  - Pseudomonas infection [Unknown]

NARRATIVE: CASE EVENT DATE: 2014
